FAERS Safety Report 23878417 (Version 1)
Quarter: 2024Q2

REPORT INFORMATION
  Report Type: Spontaneous
  Country: CH (occurrence: CH)
  Receive Date: 20240521
  Receipt Date: 20240521
  Transmission Date: 20240716
  Serious: Yes (Hospitalization)
  Sender: FDA-Public Use
  Company Number: None

PATIENT
  Age: 74 Year
  Sex: Female
  Weight: 58.6 kg

DRUGS (15)
  1. METHOTREXATE SODIUM [Suspect]
     Active Substance: METHOTREXATE SODIUM
     Indication: Sjogren^s syndrome
     Dosage: 15 MG/WOCHE, ZULETZT AM 07.03.ODER 14.03.2024
     Route: 058
     Dates: start: 201711, end: 20240315
  2. ACTEMRA [Suspect]
     Active Substance: TOCILIZUMAB
     Indication: Sjogren^s syndrome
     Dosage: 162 MG/WOCHE, ZULETZT AM 08.03.2024
     Route: 058
     Dates: start: 201904, end: 20240315
  3. AMPHO-MORONAL [Concomitant]
     Active Substance: AMPHOTERICIN B
     Route: 002
  4. ELIQUIS [Concomitant]
     Active Substance: APIXABAN
     Route: 048
  5. BUPRENORPHINE [Concomitant]
     Active Substance: BUPRENORPHINE
     Dosage: 35 MCG/H MATRIXPFLASTER, 1 STUCK, TRANSDERMAL, ALLE 96 STD
     Route: 062
  6. DAFALGAN [Concomitant]
     Active Substance: ACETAMINOPHEN
     Route: 048
  7. ESOMEPRAZOL SANDOZ [Concomitant]
     Route: 048
  8. IRBESARTAN [Concomitant]
     Active Substance: IRBESARTAN
     Route: 048
  9. PREDNISOLONE [Concomitant]
     Active Substance: PREDNISOLONE
     Route: 048
  10. ROSUVASTATIN CALCIUM [Concomitant]
     Active Substance: ROSUVASTATIN CALCIUM
     Route: 048
  11. SERTRALINE [Concomitant]
     Active Substance: SERTRALINE HYDROCHLORIDE
     Route: 048
  12. BUPRENORPHINE HYDROCHLORIDE [Concomitant]
     Active Substance: BUPRENORPHINE HYDROCHLORIDE
     Route: 060
  13. TERIPARATIDE [Concomitant]
     Active Substance: TERIPARATIDE
     Route: 058
  14. DALACIN VAGINAL [Concomitant]
     Dates: start: 20240323
  15. CLINDAMYCIN [Concomitant]
     Active Substance: CLINDAMYCIN
     Dates: start: 202403

REACTIONS (4)
  - Pancytopenia [Recovering/Resolving]
  - Thrombocytopenia [Recovered/Resolved]
  - Anaemia [Not Recovered/Not Resolved]
  - Leukopenia [Recovered/Resolved]

NARRATIVE: CASE EVENT DATE: 20240308
